FAERS Safety Report 12167130 (Version 1)
Quarter: 2016Q1

REPORT INFORMATION
  Report Type: Spontaneous
  Country: KR (occurrence: KR)
  Receive Date: 20160310
  Receipt Date: 20160310
  Transmission Date: 20160526
  Serious: Yes (Other)
  Sender: FDA-Public Use
  Company Number: KR-CIPLA LTD.-2016KR02207

PATIENT

DRUGS (2)
  1. DOCETAXEL. [Suspect]
     Active Substance: DOCETAXEL
     Indication: SQUAMOUS CELL CARCINOMA OF LUNG
     Dosage: 75 MG/M2, ON DAY 1, EVERY 21 DAYS
     Route: 065
  2. CARBOPLATIN. [Suspect]
     Active Substance: CARBOPLATIN
     Indication: SQUAMOUS CELL CARCINOMA OF LUNG
     Dosage: AUC 5, ON DAY 1, EVERY 21 DAYS
     Route: 065

REACTIONS (3)
  - Nausea [Unknown]
  - Neutropenia [Unknown]
  - Hypoalbuminaemia [Unknown]
